FAERS Safety Report 10990910 (Version 4)
Quarter: 2015Q3

REPORT INFORMATION
  Report Type: Report from Study
  Country: JP (occurrence: JP)
  Receive Date: 20150406
  Receipt Date: 20150909
  Transmission Date: 20151125
  Serious: Yes (Hospitalization)
  Sender: FDA-Public Use
  Company Number: JP-ABBVIE-15K-087-1370227-00

PATIENT
  Age: 36 Year
  Sex: Female

DRUGS (32)
  1. HUMIRA [Suspect]
     Active Substance: ADALIMUMAB
     Route: 058
     Dates: start: 20131223, end: 20140428
  2. PREDNISOLONE. [Concomitant]
     Active Substance: PREDNISOLONE
     Route: 048
     Dates: start: 20131210, end: 20131223
  3. PREDNISOLONE. [Concomitant]
     Active Substance: PREDNISOLONE
     Route: 048
     Dates: start: 20140121, end: 20140203
  4. ESOMEPRAZOLE MAGNESIUM. [Concomitant]
     Active Substance: ESOMEPRAZOLE MAGNESIUM
     Indication: PROPHYLAXIS
     Route: 048
     Dates: end: 20140317
  5. SODIUM RISEDRONATE HYDRATE [Concomitant]
     Indication: PROPHYLAXIS
     Route: 048
     Dates: end: 20140317
  6. BIFIDOBACTERIUM NOS [Concomitant]
     Indication: BEHCET^S SYNDROME
     Route: 048
     Dates: start: 20140428, end: 20140707
  7. HUMIRA [Suspect]
     Active Substance: ADALIMUMAB
     Indication: BEHCET^S SYNDROME
     Route: 058
     Dates: start: 20131125, end: 20131125
  8. HUMIRA [Suspect]
     Active Substance: ADALIMUMAB
     Route: 058
     Dates: start: 20140623, end: 20140623
  9. HUMIRA [Suspect]
     Active Substance: ADALIMUMAB
     Route: 058
     Dates: start: 20131209, end: 20131209
  10. REBAMIPIDE [Concomitant]
     Active Substance: REBAMIPIDE
     Indication: PROPHYLAXIS
     Route: 048
     Dates: end: 20131209
  11. TRAMAZOLINE HYDROCHLORIDE [Concomitant]
     Active Substance: TRAMAZOLINE HYDROCHLORIDE
     Indication: PROPHYLAXIS
     Dosage: 2-3 TIMES/DAY
     Route: 045
     Dates: start: 20140317
  12. PREDNISOLONE. [Concomitant]
     Active Substance: PREDNISOLONE
     Indication: BEHCET^S SYNDROME
     Route: 048
     Dates: end: 20131209
  13. PREDNISOLONE. [Concomitant]
     Active Substance: PREDNISOLONE
     Route: 048
     Dates: start: 20131224, end: 20140106
  14. PREDNISOLONE. [Concomitant]
     Active Substance: PREDNISOLONE
     Route: 048
     Dates: start: 20140107, end: 20140120
  15. PREDNISOLONE. [Concomitant]
     Active Substance: PREDNISOLONE
     Route: 048
     Dates: start: 20140304, end: 20140317
  16. LOXONIN [Concomitant]
     Active Substance: LOXOPROFEN SODIUM
     Indication: BEHCET^S SYNDROME
     Route: 048
     Dates: end: 20140824
  17. ELENTAL [Concomitant]
     Active Substance: MINERALS\VITAMINS
     Indication: BEHCET^S SYNDROME
     Dates: start: 20140417, end: 20140422
  18. HUMIRA [Suspect]
     Active Substance: ADALIMUMAB
     Route: 058
     Dates: start: 20140721
  19. MESALAZINE [Concomitant]
     Active Substance: MESALAMINE
     Indication: BEHCET^S SYNDROME
     Route: 048
     Dates: end: 20140317
  20. MESALAZINE [Concomitant]
     Active Substance: MESALAMINE
     Dates: start: 20140318
  21. SULFAMETHOXAZOLE AND TRIMETHOPRIM [Concomitant]
     Active Substance: SULFAMETHOXAZOLE\TRIMETHOPRIM
     Indication: PROPHYLAXIS
     Route: 048
     Dates: start: 20131125, end: 20140317
  22. AZATHIOPRINE. [Concomitant]
     Active Substance: AZATHIOPRINE
     Dates: start: 20140728
  23. COLCHICINE. [Concomitant]
     Active Substance: COLCHICINE
     Indication: BEHCET^S SYNDROME
     Route: 048
  24. SCOPOLAMINE BUTYLBROMIDE [Concomitant]
     Active Substance: SCOPOLAMINE
     Indication: BEHCET^S SYNDROME
     Route: 048
     Dates: end: 20140217
  25. DEXAMETHASONE. [Concomitant]
     Active Substance: DEXAMETHASONE
     Indication: BEHCET^S SYNDROME
     Dosage: 1-2 TIMES/DAY
     Route: 061
  26. AZATHIOPRINE. [Concomitant]
     Active Substance: AZATHIOPRINE
     Indication: BEHCET^S SYNDROME
     Route: 048
     Dates: end: 20140727
  27. PREDNISOLONE. [Concomitant]
     Active Substance: PREDNISOLONE
     Route: 048
     Dates: start: 20140204, end: 20140217
  28. PREDNISOLONE. [Concomitant]
     Active Substance: PREDNISOLONE
     Route: 048
     Dates: start: 20140218, end: 20140303
  29. LOXOPROFEN SODIUM [Concomitant]
     Active Substance: LOXOPROFEN SODIUM
     Indication: BEHCET^S SYNDROME
     Route: 048
     Dates: start: 20140825
  30. HUMIRA [Suspect]
     Active Substance: ADALIMUMAB
     Route: 058
     Dates: start: 20140707, end: 20140707
  31. LEVOCABASTINE HYDROCHLORIDE [Concomitant]
     Active Substance: LEVOCABASTINE HYDROCHLORIDE
     Indication: PROPHYLAXIS
     Route: 061
     Dates: start: 20140317
  32. PYRIDOXAL PHOSPHATE [Concomitant]
     Active Substance: PYRIDOXAL PHOSPHATE
     Indication: BEHCET^S SYNDROME
     Route: 048
     Dates: start: 20140616

REACTIONS (4)
  - Vomiting [Recovered/Resolved]
  - Anaemia [Recovered/Resolved]
  - Latent tuberculosis [Unknown]
  - Behcet^s syndrome [Recovered/Resolved]

NARRATIVE: CASE EVENT DATE: 20140107
